FAERS Safety Report 8932049 (Version 1)
Quarter: 2012Q4

REPORT INFORMATION
  Report Type: 
  Country: US (occurrence: US)
  Receive Date: 20121128
  Receipt Date: 20121128
  Transmission Date: 20130627
  Serious: Yes (Other)
  Sender: FDA-Public Use
  Company Number: US-PFIZER INC-2012296312

PATIENT

DRUGS (3)
  1. LYRICA [Suspect]
     Indication: NEUROPATHY PERIPHERAL
     Dosage: 50 mg, (one capsule before bedtime)
  2. LANTUS [Concomitant]
     Dosage: 12 units
  3. NOVOLOG [Concomitant]
     Dosage: UNK

REACTIONS (2)
  - Blood glucose increased [Unknown]
  - Feeling abnormal [Unknown]
